FAERS Safety Report 20631997 (Version 1)
Quarter: 2022Q1

REPORT INFORMATION
  Report Type: Spontaneous
  Country: BR (occurrence: BR)
  Receive Date: 20220324
  Receipt Date: 20220324
  Transmission Date: 20220423
  Serious: Yes (Other)
  Sender: FDA-Public Use
  Company Number: BR-009507513-2203BRA006510

PATIENT
  Age: 61 Year
  Sex: Female
  Weight: 90 kg

DRUGS (5)
  1. METFORMIN HYDROCHLORIDE\SITAGLIPTIN PHOSPHATE [Suspect]
     Active Substance: METFORMIN HYDROCHLORIDE\SITAGLIPTIN PHOSPHATE
     Indication: Diabetes mellitus
     Dosage: 50MG (+) 1000MG
     Route: 048
  2. METFORMIN HYDROCHLORIDE\SITAGLIPTIN PHOSPHATE [Suspect]
     Active Substance: METFORMIN HYDROCHLORIDE\SITAGLIPTIN PHOSPHATE
     Dosage: 50MG (+) 1000MG, 1 DF IN THE MORNING AND 1 DF AT NIGHT
     Route: 048
     Dates: start: 20220315
  3. OMEPRAZOLE [Concomitant]
     Active Substance: OMEPRAZOLE
     Indication: Abdominal discomfort
     Dosage: 1 TABLET IN THE MORNING
     Route: 048
     Dates: start: 2017
  4. DIOVAN [Concomitant]
     Active Substance: VALSARTAN
     Indication: Hypertension
     Dosage: 80/12,5 MG, 1/2 TABLET IN THE MORNING
     Route: 048
     Dates: start: 2012
  5. ATORVASTATIN [Concomitant]
     Active Substance: ATORVASTATIN
     Indication: Blood cholesterol abnormal
     Dosage: 1 TABLET AT NIGHT
     Route: 048
     Dates: start: 202109

REACTIONS (13)
  - Abdominal pain upper [Not Recovered/Not Resolved]
  - Hepatic pain [Not Recovered/Not Resolved]
  - Decreased appetite [Unknown]
  - Illness [Unknown]
  - Decreased appetite [Unknown]
  - Illness [Unknown]
  - Abdominal distension [Unknown]
  - Vomiting [Unknown]
  - Illness [Unknown]
  - Vomiting [Unknown]
  - Dysphonia [Not Recovered/Not Resolved]
  - Bone pain [Not Recovered/Not Resolved]
  - Arthralgia [Not Recovered/Not Resolved]

NARRATIVE: CASE EVENT DATE: 20220301
